FAERS Safety Report 20389099 (Version 4)
Quarter: 2022Q1

REPORT INFORMATION
  Report Type: Spontaneous
  Country: US (occurrence: US)
  Receive Date: 20220128
  Receipt Date: 20220307
  Transmission Date: 20220423
  Serious: Yes (Hospitalization, Other)
  Sender: FDA-Public Use
  Company Number: US-SA-SAC20220127000838

PATIENT
  Age: 63 Year
  Sex: Male

DRUGS (3)
  1. SARCLISA [Suspect]
     Active Substance: ISATUXIMAB-IRFC
     Indication: Plasma cell myeloma
     Dosage: 43 MG
     Route: 065
     Dates: start: 20211123
  2. SARCLISA [Suspect]
     Active Substance: ISATUXIMAB-IRFC
     Dosage: UNK
     Dates: start: 20211214
  3. CARFILZOMIB [Suspect]
     Active Substance: CARFILZOMIB
     Indication: Plasma cell myeloma
     Dosage: UNK
     Dates: start: 20211123

REACTIONS (4)
  - Blood pressure increased [Recovering/Resolving]
  - Pyrexia [Unknown]
  - Off label use [Unknown]
  - Product use issue [Unknown]

NARRATIVE: CASE EVENT DATE: 20211123
